FAERS Safety Report 21421873 (Version 13)
Quarter: 2023Q2

REPORT INFORMATION
  Report Type: Report from Study
  Country: PL (occurrence: PL)
  Receive Date: 20221007
  Receipt Date: 20230626
  Transmission Date: 20230722
  Serious: Yes (Hospitalization)
  Sender: FDA-Public Use
  Company Number: PL-ELI_LILLY_AND_COMPANY-PL202209009210

PATIENT
  Age: 61 Year
  Sex: Female
  Weight: 97.7 kg

DRUGS (11)
  1. TIRZEPATIDE [Suspect]
     Active Substance: TIRZEPATIDE
     Indication: Type 2 diabetes mellitus
     Dosage: UNK UNK, WEEKLY (1/W)
     Route: 058
     Dates: start: 20201015, end: 20220915
  2. TIRZEPATIDE [Suspect]
     Active Substance: TIRZEPATIDE
     Dosage: UNK, WEEKLY (1/W)
     Route: 058
     Dates: start: 20201015, end: 20220915
  3. TICAGRELOR [Concomitant]
     Active Substance: TICAGRELOR
     Indication: Type 2 diabetes mellitus
     Dosage: 90 MG, DAILY
     Route: 048
     Dates: start: 20200523, end: 20220916
  4. ASPIRIN [Concomitant]
     Active Substance: ASPIRIN
     Indication: Type 2 diabetes mellitus
     Dosage: 75 MG, DAILY
     Route: 048
     Dates: start: 20200523, end: 20220916
  5. ATORVASTATIN [Concomitant]
     Active Substance: ATORVASTATIN
     Indication: Product used for unknown indication
     Dosage: 80 MG, DAILY
     Route: 048
     Dates: start: 20200523, end: 20220916
  6. LACIDIPINE [Concomitant]
     Active Substance: LACIDIPINE
     Indication: Product used for unknown indication
     Dosage: 4 MG, DAILY
     Route: 048
     Dates: start: 2010, end: 20220916
  7. TRIMETAZIDINE DIHYDROCHLORIDE [Concomitant]
     Active Substance: TRIMETAZIDINE DIHYDROCHLORIDE
     Indication: Type 2 diabetes mellitus
     Dosage: 70 MG, DAILY
     Route: 048
     Dates: start: 20200523
  8. BISOPROLOL [Concomitant]
     Active Substance: BISOPROLOL
     Indication: Type 2 diabetes mellitus
     Dosage: 5 MG, DAILY
     Route: 048
     Dates: start: 20200523
  9. PERINDOPRIL [Concomitant]
     Active Substance: PERINDOPRIL
     Indication: Type 2 diabetes mellitus
     Dosage: 5 MG, DAILY
     Route: 048
     Dates: start: 20200523, end: 20220916
  10. PANTOPRAZOLE SODIUM [Concomitant]
     Active Substance: PANTOPRAZOLE SODIUM
     Indication: Prophylaxis
     Dosage: UNK, UNKNOWN
     Route: 048
     Dates: start: 20200523, end: 20220916
  11. GLUCOPHAGE [Concomitant]
     Active Substance: METFORMIN HYDROCHLORIDE
     Indication: Type 2 diabetes mellitus
     Dosage: 2550 MG, DAILY
     Route: 048
     Dates: start: 2012, end: 20220916

REACTIONS (2)
  - Cholestasis [Recovered/Resolved]
  - Hepatotoxicity [Recovered/Resolved]

NARRATIVE: CASE EVENT DATE: 20220916
